FAERS Safety Report 9141985 (Version 1)
Quarter: 2013Q1

REPORT INFORMATION
  Report Type: Spontaneous
  Country: US (occurrence: US)
  Receive Date: 20130305
  Receipt Date: 20130305
  Transmission Date: 20140127
  Serious: No
  Sender: FDA-Public Use
  Company Number: US-AMGEN-USASP2013013174

PATIENT
  Sex: Female

DRUGS (1)
  1. ENBREL [Suspect]
     Indication: PSORIASIS
     Dosage: 50 MG, TWICE WEEKLY
     Dates: start: 20030203

REACTIONS (6)
  - Mass [Recovered/Resolved]
  - Pain [Recovered/Resolved]
  - Contusion [Recovered/Resolved]
  - Pruritus [Recovered/Resolved]
  - Psoriasis [Recovered/Resolved]
  - Injection site pain [Recovered/Resolved]
